FAERS Safety Report 14466724 (Version 1)
Quarter: 2018Q1

REPORT INFORMATION
  Report Type: Spontaneous
  Country: US (occurrence: US)
  Receive Date: 20180130
  Receipt Date: 20180130
  Transmission Date: 20180509
  Serious: No
  Sender: FDA-Public Use
  Company Number: None

PATIENT
  Age: 30 Year
  Sex: Male

DRUGS (1)
  1. HUMIRA [Suspect]
     Active Substance: ADALIMUMAB
     Indication: CROHN^S DISEASE
     Dosage: 80MG (2PENS) EVERY OTHER WEEK SUBCUTANEOUS
     Route: 058
     Dates: start: 20170402

REACTIONS (3)
  - Groin infection [None]
  - Rash [None]
  - Injection site reaction [None]

NARRATIVE: CASE EVENT DATE: 20171201
